FAERS Safety Report 5798750-8 (Version None)
Quarter: 2008Q3

REPORT INFORMATION
  Report Type: 
  Country: None (occurrence: None)
  Receive Date: 20080702
  Receipt Date: 20080624
  Transmission Date: 20090109
  Serious: Yes (Death, Hospitalization, Other)
  Sender: FDA-Public Use
  Company Number: US-AMGEN-QUU283246

PATIENT
  Sex: Female

DRUGS (4)
  1. ENBREL [Suspect]
     Indication: RHEUMATOID ARTHRITIS
     Dates: start: 20011101, end: 20060101
  2. COUMADIN [Concomitant]
  3. UNSPECIFIED ANTICOAGULANT [Concomitant]
  4. PREDNISONE 50MG TAB [Concomitant]

REACTIONS (11)
  - ASTHENIA [None]
  - ATRIAL FIBRILLATION [None]
  - CARDIAC FAILURE CONGESTIVE [None]
  - FATIGUE [None]
  - HAEMORRHAGE URINARY TRACT [None]
  - INFECTION [None]
  - MALAISE [None]
  - PNEUMONIA [None]
  - RENAL FAILURE [None]
  - SHOCK [None]
  - URINARY TRACT INFECTION [None]
